FAERS Safety Report 5816737-3 (Version None)
Quarter: 2008Q3

REPORT INFORMATION
  Report Type: 
  Country: None (occurrence: None)
  Receive Date: 20080721
  Receipt Date: 20080718
  Transmission Date: 20090109
  Serious: Yes (Hospitalization)
  Sender: FDA-Public Use
  Company Number: US-BOEHRINGER INGELHEIM GMBH, GERMANY-2008-BP-11273BP

PATIENT
  Sex: Male

DRUGS (14)
  1. SPIRIVA [Suspect]
     Indication: CHRONIC OBSTRUCTIVE PULMONARY DISEASE
  2. ADVAIR DISKUS 100/50 [Suspect]
     Indication: CHRONIC OBSTRUCTIVE PULMONARY DISEASE
     Route: 055
  3. CO-TRIMOXAZOLE [Suspect]
     Indication: INFECTION PROPHYLAXIS
     Route: 048
     Dates: start: 20080201, end: 20080201
  4. RANBEX CAPSULE [Suspect]
     Indication: INFECTION PROPHYLAXIS
     Route: 048
     Dates: start: 20071101, end: 20071101
  5. PREDNISONE TAB [Concomitant]
  6. ISOSORBIDE MONONITRATE [Concomitant]
  7. NIFEDIPINE [Concomitant]
  8. METOPROLOL SUCCINATE [Concomitant]
  9. FINASTERIDE [Concomitant]
  10. DONNATAL [Concomitant]
  11. LIBRAX [Concomitant]
  12. ESOMEPRAZOLE MAGNESIUM [Concomitant]
  13. EZETIMIBE + SIMVASTATIN [Concomitant]
  14. PROCATEROL HCL [Concomitant]

REACTIONS (8)
  - BRONCHITIS [None]
  - COUGH [None]
  - DIZZINESS [None]
  - IRITIS [None]
  - KERATITIS [None]
  - LUNG INFECTION [None]
  - OEDEMA PERIPHERAL [None]
  - RETINAL DETACHMENT [None]
